FAERS Safety Report 5037542-4 (Version None)
Quarter: 2006Q2

REPORT INFORMATION
  Report Type: 
  Country: None (occurrence: None)
  Receive Date: 20060607
  Receipt Date: 20060119
  Transmission Date: 20061013
  Serious: No
  Sender: FDA-Public Use
  Company Number: 32981

PATIENT
  Age: 74 Year
  Sex: Male

DRUGS (20)
  1. NEVANAC [Suspect]
     Indication: PROPHYLAXIS
     Dates: start: 20051010, end: 20051023
  2. ACCUPRIL [Concomitant]
  3. ASPIRIN [Concomitant]
  4. DOXAZOSIN [Concomitant]
  5. HYDROCHLOROTHIAZIDE [Concomitant]
  6. HUMALOG [Concomitant]
  7. ISOSORBIDE MONONITRATE [Concomitant]
  8. LANTUS [Concomitant]
  9. LIPITOR [Concomitant]
  10. MIRTAZAPINE [Concomitant]
  11. MYSOLINE [Concomitant]
  12. NORVASC [Concomitant]
  13. PLAVIX [Concomitant]
  14. PREVACID [Concomitant]
  15. PROSCAR [Concomitant]
  16. TOPROL-XL [Concomitant]
  17. CHONDROITIN [Concomitant]
  18. FISH OIL [Concomitant]
  19. FOLIC ACID [Concomitant]
  20. GLUCOSAMINE [Concomitant]

REACTIONS (1)
  - MACULAR OEDEMA [None]
